FAERS Safety Report 4333604-5 (Version None)
Quarter: 2004Q2

REPORT INFORMATION
  Report Type: 
  Country: None (occurrence: None)
  Receive Date: 20040401
  Receipt Date: 20040324
  Transmission Date: 20050107
  Serious: Yes (Death, Hospitalization)
  Sender: FDA-Public Use
  Company Number: TPA2004A00367

PATIENT
  Age: 84 Year
  Sex: Female
  Weight: 48.9885 kg

DRUGS (9)
  1. ACTOS [Suspect]
     Indication: DIABETES MELLITUS
     Dosage: UNK., 1 IN 1 D, PER ORAL;  30 MG, 1 IN 1 D, PER ORAL
     Route: 048
     Dates: end: 20040301
  2. LANTUS [Concomitant]
  3. PRANDIN [Concomitant]
  4. NOVOLOG [Concomitant]
  5. SYNTHROID [Concomitant]
  6. MIACALCIN [Concomitant]
  7. CELEBREX [Concomitant]
  8. ZOCOR [Concomitant]
  9. GLUCOPHAGE [Concomitant]

REACTIONS (11)
  - ARTERIOSCLEROSIS [None]
  - BACK INJURY [None]
  - BACK PAIN [None]
  - BLOOD GLUCOSE DECREASED [None]
  - CARDIAC ARREST [None]
  - FAILURE TO THRIVE [None]
  - FALL [None]
  - FEELING ABNORMAL [None]
  - GENERAL PHYSICAL HEALTH DETERIORATION [None]
  - PAIN [None]
  - THROMBOSIS [None]
